FAERS Safety Report 8156619-8 (Version None)
Quarter: 2012Q1

REPORT INFORMATION
  Report Type: 
  Country: None (occurrence: None)
  Receive Date: 20120222
  Receipt Date: 20120208
  Transmission Date: 20120608
  Serious: Yes (Hospitalization)
  Sender: FDA-Public Use
  Company Number: US-WATSON-2012-02247

PATIENT
  Age: 72 Year
  Sex: Male

DRUGS (1)
  1. RAPAFLO [Suspect]
     Indication: BENIGN PROSTATIC HYPERPLASIA
     Dosage: 1 QD
     Route: 048
     Dates: start: 20120203, end: 20120205

REACTIONS (5)
  - SKIN IRRITATION [None]
  - TACHYCARDIA [None]
  - DEHYDRATION [None]
  - RASH [None]
  - ORTHOSTATIC HYPOTENSION [None]
